FAERS Safety Report 5054003-7 (Version None)
Quarter: 2006Q3

REPORT INFORMATION
  Report Type: 
  Country: None (occurrence: None)
  Receive Date: 20060713
  Receipt Date: 20060705
  Transmission Date: 20061208
  Serious: Yes (Hospitalization)
  Sender: FDA-Public Use
  Company Number: 2006-01638

PATIENT
  Age: 95 Year
  Sex: Male

DRUGS (8)
  1. KENTERA (WATSON LABORATORIES (OXYBUTYNIN) TRANSDERMAL  PATCH, 3.9MG [Suspect]
     Dosage: TRANSDERMAL
     Route: 062
  2. BISOPROLOL FUMARATE [Concomitant]
  3. RAMIPRIL [Concomitant]
  4. ASPIRIN [Concomitant]
  5. IMOUR [Concomitant]
  6. METFORMIN [Concomitant]
  7. CLICLAZIDE [Concomitant]
  8. LORAZEPAM [Concomitant]

REACTIONS (3)
  - BLOOD CREATININE INCREASED [None]
  - CONFUSIONAL STATE [None]
  - HEAD INJURY [None]
